FAERS Safety Report 12875883 (Version 4)
Quarter: 2017Q1

REPORT INFORMATION
  Report Type: Report from Study
  Country: JP (occurrence: JP)
  Receive Date: 20161024
  Receipt Date: 20170123
  Transmission Date: 20170428
  Serious: Yes (Hospitalization, Other)
  Sender: FDA-Public Use
  Company Number: JP-ROCHE-1845417

PATIENT
  Age: 49 Year
  Sex: Female

DRUGS (33)
  1. OMALIZUMAB [Suspect]
     Active Substance: OMALIZUMAB
     Dosage: UNK
     Route: 058
     Dates: start: 20160701
  2. BAKTAR [Suspect]
     Active Substance: SULFAMETHOXAZOLE\TRIMETHOPRIM
     Indication: PROPHYLAXIS
     Dosage: UNK
     Route: 065
     Dates: start: 20160930
  3. RINDERON V [Concomitant]
     Active Substance: BETAMETHASONE VALERATE
     Indication: ASTHMA
     Dosage: 4 MG, QD
     Route: 041
     Dates: start: 20160603, end: 20160603
  4. RINDERON V [Concomitant]
     Active Substance: BETAMETHASONE VALERATE
     Dosage: 4 MG, QD
     Route: 041
     Dates: start: 20160927, end: 20160927
  5. OMALIZUMAB [Suspect]
     Active Substance: OMALIZUMAB
     Dosage: UNK
     Route: 058
     Dates: start: 20160808
  6. SINGULAIR [Concomitant]
     Active Substance: MONTELUKAST SODIUM
     Indication: ASTHMA
     Route: 048
  7. SULTANOL [Concomitant]
     Active Substance: ALBUTEROL SULFATE
     Dosage: 100 UG, UNK
     Route: 055
     Dates: start: 20160930, end: 20160930
  8. RINDERON V [Concomitant]
     Active Substance: BETAMETHASONE VALERATE
     Dosage: 4 UG, QD
     Route: 041
     Dates: start: 20160912, end: 20160912
  9. RINDERON V [Concomitant]
     Active Substance: BETAMETHASONE VALERATE
     Dosage: 4 MG, QD
     Route: 041
     Dates: start: 20160930, end: 20160930
  10. RINDERON V [Concomitant]
     Active Substance: BETAMETHASONE VALERATE
     Dosage: 4 MG, QD
     Route: 041
     Dates: start: 20161003, end: 20161003
  11. OMALIZUMAB [Suspect]
     Active Substance: OMALIZUMAB
     Dosage: 600 MG, UNK
     Route: 058
     Dates: start: 20161121
  12. SPIRIVA [Concomitant]
     Active Substance: TIOTROPIUM BROMIDE MONOHYDRATE
     Indication: ASTHMA
     Route: 055
  13. SULTANOL [Concomitant]
     Active Substance: ALBUTEROL SULFATE
     Dosage: 100 UG, UNK
     Route: 055
     Dates: start: 20160920, end: 20160920
  14. FLUTIFORM [Concomitant]
     Active Substance: FLUTICASONE PROPIONATE\FORMOTEROL FUMARATE
     Indication: ASTHMA
     Route: 055
  15. CLARITIN [Concomitant]
     Active Substance: LORATADINE
     Indication: RHINITIS ALLERGIC
     Dosage: 10 MG, UNK
     Route: 048
  16. SULTANOL [Concomitant]
     Active Substance: ALBUTEROL SULFATE
     Indication: ASTHMA
     Dosage: 100 UG, UNK
     Route: 055
     Dates: start: 20160603, end: 20160603
  17. SULTANOL [Concomitant]
     Active Substance: ALBUTEROL SULFATE
     Dosage: 100 UG, UNK
     Route: 055
     Dates: start: 20160905, end: 20160905
  18. PREDONINE [Concomitant]
     Active Substance: PREDNISOLONE
     Indication: ASTHMA
     Route: 048
     Dates: start: 20160908, end: 20160909
  19. RINDERON V [Concomitant]
     Active Substance: BETAMETHASONE VALERATE
     Dosage: 4 MG, UNK
     Route: 041
     Dates: start: 201610
  20. IPD [Concomitant]
     Active Substance: SUPLATAST TOSILATE
     Indication: ASTHMA
     Route: 048
  21. PREDONINE [Concomitant]
     Active Substance: PREDNISOLONE
     Route: 048
     Dates: start: 20160913, end: 20160930
  22. SULTANOL [Concomitant]
     Active Substance: ALBUTEROL SULFATE
     Dosage: 100 UG, UNK
     Route: 055
     Dates: start: 20160912, end: 20160912
  23. OMALIZUMAB [Suspect]
     Active Substance: OMALIZUMAB
     Indication: ASTHMA
     Dosage: UNK
     Route: 058
     Dates: start: 20160603
  24. NEXIUM [Concomitant]
     Active Substance: ESOMEPRAZOLE MAGNESIUM
     Indication: GASTROOESOPHAGEAL REFLUX DISEASE
     Dosage: 10 MG, UNK
     Route: 048
  25. SULTANOL [Concomitant]
     Active Substance: ALBUTEROL SULFATE
     Dosage: 100 UG, UNK
     Route: 055
     Dates: start: 20160913, end: 20160913
  26. RINDERON V [Concomitant]
     Active Substance: BETAMETHASONE VALERATE
     Indication: RASH
     Dosage: 4 MG, QD
     Route: 041
     Dates: start: 20160905, end: 20160905
  27. OMALIZUMAB [Suspect]
     Active Substance: OMALIZUMAB
     Dosage: 600 MG, UNK
     Route: 058
     Dates: start: 20160905
  28. OMALIZUMAB [Suspect]
     Active Substance: OMALIZUMAB
     Dosage: 600 MG, UNK
     Route: 058
     Dates: start: 20161012
  29. UNIPHYL [Concomitant]
     Active Substance: THEOPHYLLINE ANHYDROUS
     Indication: ASTHMA
     Route: 048
  30. SULTANOL [Concomitant]
     Active Substance: ALBUTEROL SULFATE
     Dosage: 100 UG, UNK
     Route: 055
     Dates: start: 20160908, end: 20160909
  31. SULTANOL [Concomitant]
     Active Substance: ALBUTEROL SULFATE
     Dosage: 100 UG, UNK
     Route: 055
     Dates: start: 20160927, end: 20160927
  32. RINDERON V [Concomitant]
     Active Substance: BETAMETHASONE VALERATE
     Dosage: 4 MG, QD
     Route: 041
     Dates: start: 20160920, end: 20160920
  33. RINDERON V [Concomitant]
     Active Substance: BETAMETHASONE VALERATE
     Dosage: 10 MG, UNK
     Route: 041
     Dates: start: 20161019

REACTIONS (9)
  - Nausea [Recovered/Resolved]
  - Neutrophil count increased [Recovered/Resolved]
  - Malaise [Recovered/Resolved]
  - Blood pressure systolic increased [Recovered/Resolved]
  - Rash [Recovered/Resolved]
  - Hepatic function abnormal [Recovered/Resolved]
  - Dizziness [Recovered/Resolved]
  - Pyrexia [Recovered/Resolved]
  - Dizziness [Recovered/Resolved]

NARRATIVE: CASE EVENT DATE: 20160703
